FAERS Safety Report 9676509 (Version 1)
Quarter: 2013Q4

REPORT INFORMATION
  Report Type: Spontaneous
  Country: US (occurrence: US)
  Receive Date: 20131107
  Receipt Date: 20131107
  Transmission Date: 20140711
  Serious: Yes (Other)
  Sender: FDA-Public Use
  Company Number: US-PFIZER INC-2013316942

PATIENT
  Age: 44 Year
  Sex: Male
  Weight: 95.24 kg

DRUGS (1)
  1. CHANTIX [Suspect]
     Indication: SMOKING CESSATION THERAPY
     Dosage: 0.5 MG, 1X/DAY
     Route: 048
     Dates: start: 201308, end: 2013

REACTIONS (3)
  - Myocardial infarction [Unknown]
  - Dyspepsia [Unknown]
  - Malaise [Unknown]
